FAERS Safety Report 6374143-X (Version None)
Quarter: 2009Q3

REPORT INFORMATION
  Report Type: 
  Country: None (occurrence: None)
  Receive Date: 20090924
  Receipt Date: 20090709
  Transmission Date: 20100115
  Serious: Yes (Hospitalization)
  Sender: FDA-Public Use
  Company Number: US-ASTRAZENECA-2009UW16777

PATIENT
  Age: 46 Year
  Sex: Female
  Weight: 65.8 kg

DRUGS (10)
  1. SEROQUEL [Suspect]
     Indication: BIPOLAR II DISORDER
     Route: 048
  2. SEROQUEL [Suspect]
     Route: 048
  3. SEROQUEL [Suspect]
     Route: 048
     Dates: start: 20030101
  4. ZYRTEC [Concomitant]
  5. CELEXA [Concomitant]
  6. SINGULAIR [Concomitant]
  7. MOTRIN [Concomitant]
  8. BROVANA [Concomitant]
     Indication: ASTHMA
  9. ANTIHISTAMINES [Concomitant]
  10. PAIN PILLS [Concomitant]

REACTIONS (5)
  - BLOOD PRESSURE DECREASED [None]
  - PHOTOPHOBIA [None]
  - SYNCOPE [None]
  - TEMPERATURE REGULATION DISORDER [None]
  - URINARY RETENTION [None]
